FAERS Safety Report 10369821 (Version 1)
Quarter: 2014Q3

REPORT INFORMATION
  Report Type: Spontaneous
  Country: US (occurrence: US)
  Receive Date: 20140808
  Receipt Date: 20140808
  Transmission Date: 20150326
  Serious: Yes (Hospitalization, Disabling)
  Sender: FDA-Public Use
  Company Number: US-ACCORD-025188

PATIENT
  Age: 46 Year
  Sex: Male

DRUGS (1)
  1. METHOTREXATE [Suspect]
     Active Substance: METHOTREXATE
     Indication: ACUTE LYMPHOCYTIC LEUKAEMIA
     Dosage: VIA SERIAL LUMBAR PUNCTURES. FOURTH ROUNDS OF THERAPY
     Route: 037

REACTIONS (4)
  - Febrile neutropenia [Unknown]
  - Headache [Recovered/Resolved]
  - Vision blurred [Unknown]
  - Neck pain [Unknown]
